FAERS Safety Report 10948999 (Version 3)
Quarter: 2015Q3

REPORT INFORMATION
  Report Type: Spontaneous
  Country: US (occurrence: US)
  Receive Date: 20150324
  Receipt Date: 20150706
  Transmission Date: 20151125
  Serious: Yes (Death, Other)
  Sender: FDA-Public Use
  Company Number: US-RECKITT BENCKISER PHARMACEUTICAL, INC-RB-077252-2015

PATIENT
  Age: 2 Year
  Sex: Female

DRUGS (2)
  1. OXYCODONE [Suspect]
     Active Substance: OXYCODONE
     Indication: PRODUCT USED FOR UNKNOWN INDICATION
     Dosage: UNK
     Route: 065
  2. BUPRENORPHINE/NALOXONE [Suspect]
     Active Substance: BUPRENORPHINE\NALOXONE
     Indication: PRODUCT USED FOR UNKNOWN INDICATION
     Dosage: UNKNOWN
     Route: 065
     Dates: start: 201410, end: 20141019

REACTIONS (8)
  - Victim of homicide [Fatal]
  - Toxicity to various agents [Fatal]
  - Drug administered to patient of inappropriate age [Recovered/Resolved]
  - Drug screen positive [Recovered/Resolved]
  - Malaise [Recovered/Resolved]
  - Unresponsive to stimuli [Fatal]
  - Respiratory arrest [Fatal]
  - Vomiting [Recovered/Resolved]

NARRATIVE: CASE EVENT DATE: 201410
